FAERS Safety Report 5338624-X (Version None)
Quarter: 2007Q2

REPORT INFORMATION
  Report Type: 
  Country: None (occurrence: None)
  Receive Date: 20070322
  Receipt Date: 20060717
  Transmission Date: 20071010
  Serious: Yes (Other)
  Sender: FDA-Public Use
  Company Number: 200612801BCC

PATIENT
  Age: 25 Year
  Sex: Female
  Weight: 68.0396 kg

DRUGS (6)
  1. ALEVE [Suspect]
     Indication: DYSMENORRHOEA
     Dosage: SEE IMAGE
     Route: 048
     Dates: start: 20060101
  2. ALEVE [Suspect]
     Indication: DYSMENORRHOEA
     Dosage: SEE IMAGE
     Route: 048
     Dates: start: 20060701
  3. ZYRTEC [Concomitant]
  4. ALBUTEROL [Concomitant]
  5. SINGULAIR [Concomitant]
  6. ADVAIR DISKUS 100/50 [Concomitant]

REACTIONS (3)
  - ASTHMA [None]
  - CHEST PAIN [None]
  - DYSPNOEA [None]
